FAERS Safety Report 8813537 (Version 1)
Quarter: 2012Q4

REPORT INFORMATION
  Report Type: 
  Country: US (occurrence: US)
  Receive Date: 20120927
  Receipt Date: 20120927
  Transmission Date: 20130627
  Serious: No
  Sender: FDA-Public Use
  Company Number: US-AMGEN-USASP2012048893

PATIENT
  Age: 63 Year
  Sex: Female
  Weight: 52.61 kg

DRUGS (13)
  1. PROLIA [Suspect]
     Indication: OSTEOPOROSIS
     Dosage: 60 mg, UNK
     Dates: start: 20111010
  2. ATENOLOL [Concomitant]
  3. BENAZEPRIL [Concomitant]
  4. PRILOSEC                           /00661201/ [Concomitant]
  5. PREDNISONE [Concomitant]
     Indication: CHRONIC OBSTRUCTIVE PULMONARY DISEASE
  6. IRON [Concomitant]
  7. ASACOL [Concomitant]
  8. SPIRIVA [Concomitant]
  9. SYMBICORT [Concomitant]
  10. ALBUTEROL                          /00139501/ [Concomitant]
  11. OXYGEN [Concomitant]
  12. POTASSIUM [Concomitant]
  13. CALCIUM [Concomitant]

REACTIONS (11)
  - Trismus [Not Recovered/Not Resolved]
  - Oral pain [Not Recovered/Not Resolved]
  - Pain in jaw [Not Recovered/Not Resolved]
  - Joint stiffness [Not Recovered/Not Resolved]
  - Ear discomfort [Not Recovered/Not Resolved]
  - Tooth fracture [Not Recovered/Not Resolved]
  - Toothache [Not Recovered/Not Resolved]
  - Herpes zoster [Not Recovered/Not Resolved]
  - Viral infection [Not Recovered/Not Resolved]
  - Dyspnoea [Not Recovered/Not Resolved]
  - Chronic obstructive pulmonary disease [Unknown]
